FAERS Safety Report 10314370 (Version 4)
Quarter: 2014Q3

REPORT INFORMATION
  Report Type: Spontaneous
  Country: JP (occurrence: JP)
  Receive Date: 20140718
  Receipt Date: 20140822
  Transmission Date: 20150326
  Serious: Yes (Other)
  Sender: FDA-Public Use
  Company Number: JP-PFIZER INC-2014198790

PATIENT
  Age: 37 Year
  Sex: Female

DRUGS (13)
  1. MUCOSOLVAN L [Concomitant]
     Active Substance: AMBROXOL HYDROCHLORIDE
     Dosage: UNK
  2. CLEANAL [Concomitant]
     Active Substance: FUDOSTEINE
     Dosage: UNK
  3. OMEPRAL [Suspect]
     Active Substance: OMEPRAZOLE
     Dosage: 10 MG, DAILY
     Route: 048
  4. UNIPHYL LA [Concomitant]
     Active Substance: THEOPHYLLINE
     Dosage: UNK
  5. JZOLOFT [Suspect]
     Active Substance: SERTRALINE HYDROCHLORIDE
     Indication: INSOMNIA
     Dosage: 25 MG, ONLY ONCE
     Route: 048
     Dates: start: 20140714, end: 20140714
  6. LOXONIN [Concomitant]
     Active Substance: LOXOPROFEN SODIUM
     Dosage: UNK
  7. SILECE [Concomitant]
     Active Substance: FLUNITRAZEPAM
     Indication: INSOMNIA
     Dosage: UNK
  8. JZOLOFT [Suspect]
     Active Substance: SERTRALINE HYDROCHLORIDE
     Indication: DEPRESSION
  9. FLUTIFORM [Concomitant]
     Active Substance: FLUTICASONE PROPIONATE\FORMOTEROL FUMARATE
     Dosage: UNK
  10. DEPAS [Concomitant]
     Active Substance: ETIZOLAM
     Dosage: UNK
  11. JZOLOFT [Suspect]
     Active Substance: SERTRALINE HYDROCHLORIDE
     Indication: STRESS
  12. SINGULAIR [Concomitant]
     Active Substance: MONTELUKAST SODIUM
     Dosage: UNK
  13. KENACORT [Concomitant]
     Active Substance: TRIAMCINOLONE
     Dosage: UNK

REACTIONS (4)
  - Blood pressure increased [Recovered/Resolved]
  - Tachycardia [Recovered/Resolved]
  - Panic reaction [Unknown]
  - Palpitations [Unknown]

NARRATIVE: CASE EVENT DATE: 20140714
